FAERS Safety Report 5890211-0 (Version None)
Quarter: 2008Q3

REPORT INFORMATION
  Report Type: 
  Country: None (occurrence: None)
  Receive Date: 20080919
  Receipt Date: 20080910
  Transmission Date: 20090109
  Serious: Yes (Other)
  Sender: FDA-Public Use
  Company Number: US-PFIZER INC-2008076209

PATIENT
  Sex: Male
  Weight: 106.36 kg

DRUGS (10)
  1. VIAGRA [Suspect]
     Indication: ERECTILE DYSFUNCTION
     Dosage: TEXT:50MG PRN
     Route: 048
     Dates: start: 20080909
  2. SIMVASTATIN [Concomitant]
  3. SINGULAIR ^DIECKMANN^ [Concomitant]
  4. COLCHICINE [Concomitant]
  5. GABAPENTIN [Concomitant]
  6. METOCLOPRAMIDE [Concomitant]
  7. ALTACE [Concomitant]
  8. ACIPHEX [Concomitant]
  9. METFORMIN HCL [Concomitant]
  10. ALL OTHER THERAPEUTIC PRODUCTS [Concomitant]

REACTIONS (1)
  - BLOOD GLUCOSE INCREASED [None]
